FAERS Safety Report 23265760 (Version 2)
Quarter: 2023Q4

REPORT INFORMATION
  Report Type: Spontaneous
  Country: AR (occurrence: AR)
  Receive Date: 20231206
  Receipt Date: 20231220
  Transmission Date: 20240110
  Serious: Yes (Hospitalization, Other)
  Sender: FDA-Public Use
  Company Number: AR-Merck Healthcare KGaA-2023487066

PATIENT
  Age: 76 Year
  Sex: Male

DRUGS (9)
  1. BAVENCIO [Suspect]
     Active Substance: AVELUMAB
     Indication: Renal cell carcinoma
     Route: 048
     Dates: start: 20210301
  2. INLYTA [Suspect]
     Active Substance: AXITINIB
     Indication: Renal cell carcinoma
     Dosage: 14 DAYS 2 TABLETS PER DAY, THEN 14 REST
     Dates: start: 202003
  3. LEVOTHYROXINE [Concomitant]
     Active Substance: LEVOTHYROXINE
     Indication: Product used for unknown indication
     Dates: start: 202012
  4. ELBRUS [PARACETAMOL] [Concomitant]
     Indication: Product used for unknown indication
     Dates: start: 202306
  5. FENOFIBRATE [Concomitant]
     Active Substance: FENOFIBRATE
     Indication: Product used for unknown indication
     Dates: start: 202103
  6. ROSUVASTATIN [Concomitant]
     Active Substance: ROSUVASTATIN
     Indication: Product used for unknown indication
     Dates: start: 202103
  7. GLIOTEN [ENALAPRILAT] [Concomitant]
     Indication: Product used for unknown indication
     Dates: start: 1989
  8. ARTERIOSAN [Concomitant]
     Indication: Product used for unknown indication
     Dates: start: 1989
  9. ALLOPURINOL [Concomitant]
     Active Substance: ALLOPURINOL
     Indication: Product used for unknown indication
     Dates: start: 1989

REACTIONS (6)
  - Malaise [Recovered/Resolved]
  - Gastrointestinal pain [Unknown]
  - Flatulence [Unknown]
  - Syncope [Unknown]
  - Diarrhoea [Unknown]
  - Dizziness [Recovered/Resolved]

NARRATIVE: CASE EVENT DATE: 20231108
